FAERS Safety Report 5076221-4 (Version None)
Quarter: 2006Q3

REPORT INFORMATION
  Report Type: 
  Country: None (occurrence: None)
  Receive Date: 20060807
  Receipt Date: 20060719
  Transmission Date: 20061208
  Serious: Yes (Death, Other)
  Sender: FDA-Public Use
  Company Number: US200606001627

PATIENT
  Age: 74 Year
  Sex: Female

DRUGS (2)
  1. PROZAC [Suspect]
     Indication: SLEEP DISORDER
     Dosage: ORAL
     Route: 048
  2. EVISTA [Suspect]
     Indication: OSTEOPENIA
     Dosage: 60 MG, DAILY (1/D), ORAL
     Route: 048
     Dates: end: 20050101

REACTIONS (3)
  - LOSS OF CONSCIOUSNESS [None]
  - MALIGNANT NEOPLASM PROGRESSION [None]
  - SMALL CELL LUNG CANCER STAGE UNSPECIFIED [None]
